FAERS Safety Report 4810253-3 (Version None)
Quarter: 2005Q4

REPORT INFORMATION
  Report Type: 
  Country: None (occurrence: None)
  Receive Date: 20051026
  Receipt Date: 20051024
  Transmission Date: 20060501
  Serious: Yes (Hospitalization)
  Sender: FDA-Public Use
  Company Number: FR-GLAXOSMITHKLINE-B0398205A

PATIENT
  Age: 75 Year
  Sex: Male

DRUGS (1)
  1. CLAMOXYL [Suspect]
     Indication: ERYSIPELAS
     Dosage: 1G THREE TIMES PER DAY
     Route: 048
     Dates: start: 20051004, end: 20051005

REACTIONS (2)
  - ERYTHEMA [None]
  - PRURITUS [None]
